FAERS Safety Report 19708123 (Version 1)
Quarter: 2021Q3

REPORT INFORMATION
  Report Type: Spontaneous
  Country: US (occurrence: US)
  Receive Date: 20210817
  Receipt Date: 20210817
  Transmission Date: 20211014
  Serious: No
  Sender: FDA-Public Use
  Company Number: None

PATIENT
  Age: 83 Year
  Sex: Male
  Weight: 81.45 kg

DRUGS (15)
  1. LASIX 20MG [Concomitant]
  2. VITAMIN D 1000IU [Concomitant]
  3. TUMS 500MG [Concomitant]
  4. MEKINIST [Suspect]
     Active Substance: TRAMETINIB DIMETHYL SULFOXIDE
     Indication: SKIN CANCER
     Route: 048
     Dates: start: 20210615
  5. ROPINIROLE 0.25MG [Concomitant]
  6. NIACIN. [Concomitant]
     Active Substance: NIACIN
  7. ASPIRIN 81MG [Concomitant]
     Active Substance: ASPIRIN
  8. METOPROLOL TARTRATE 25MG [Concomitant]
     Active Substance: METOPROLOL TARTRATE
  9. MELOXICAM 10MG [Concomitant]
  10. FISH OIL 1000MG [Concomitant]
  11. VITAMIN B6 [Concomitant]
     Active Substance: PYRIDOXINE HYDROCHLORIDE
  12. COENZYME Q10 [Concomitant]
     Active Substance: DIETARY SUPPLEMENT\UBIDECARENONE
  13. GABAPENTIN 300MG [Concomitant]
     Active Substance: GABAPENTIN
  14. PEPCID 20MG [Concomitant]
  15. TAFINLAR [Suspect]
     Active Substance: DABRAFENIB MESYLATE
     Indication: SKIN CANCER
     Route: 048
     Dates: start: 20210615

REACTIONS (1)
  - Bacterial infection [None]

NARRATIVE: CASE EVENT DATE: 20210817
